FAERS Safety Report 20362674 (Version 1)
Quarter: 2022Q1

REPORT INFORMATION
  Report Type: Spontaneous
  Country: RU (occurrence: RU)
  Receive Date: 20220121
  Receipt Date: 20220121
  Transmission Date: 20220423
  Serious: Yes (Other)
  Sender: FDA-Public Use
  Company Number: RU-VERTEX PHARMACEUTICALS-2022-000847

PATIENT
  Age: 16 Year
  Sex: Female

DRUGS (1)
  1. ORKAMBI [Suspect]
     Active Substance: IVACAFTOR\LUMACAFTOR
     Indication: Cystic fibrosis
     Dosage: UNK
     Route: 048

REACTIONS (9)
  - Myopia [Unknown]
  - Wheezing [Unknown]
  - Rash [Unknown]
  - Pruritus [Unknown]
  - Arthralgia [Not Recovered/Not Resolved]
  - Joint swelling [Unknown]
  - Infective pulmonary exacerbation of cystic fibrosis [Unknown]
  - Sputum decreased [Unknown]
  - Visual impairment [Unknown]
